FAERS Safety Report 8909761 (Version 1)
Quarter: 2012Q4

REPORT INFORMATION
  Report Type: 
  Country: US (occurrence: US)
  Receive Date: 20121115
  Receipt Date: 20121115
  Transmission Date: 20130627
  Serious: Yes (Hospitalization, Disabling, Other)
  Sender: FDA-Public Use
  Company Number: US-PFIZER INC-2012285149

PATIENT
  Age: 79 Year
  Sex: Female
  Weight: 85.71 kg

DRUGS (4)
  1. NEURONTIN [Suspect]
     Indication: NERVE DAMAGE
     Dosage: 300 mg, 3x/day
     Dates: start: 2010
  2. NEURONTIN [Suspect]
     Indication: RHEUMATOID ARTHRITIS
  3. NEURONTIN [Suspect]
     Indication: THROMBOSIS LEG
  4. METOPROLOL [Concomitant]
     Indication: BLOOD PRESSURE HIGH
     Dosage: 25 mg, 3x/day

REACTIONS (6)
  - Lung neoplasm malignant [Unknown]
  - Nerve injury [Unknown]
  - Abasia [Unknown]
  - Pain [Unknown]
  - Off label use [Unknown]
  - Drug ineffective for unapproved indication [Unknown]
